FAERS Safety Report 21444565 (Version 3)
Quarter: 2023Q1

REPORT INFORMATION
  Report Type: Spontaneous
  Country: US (occurrence: US)
  Receive Date: 20221012
  Receipt Date: 20230111
  Transmission Date: 20230418
  Serious: Yes (Life-Threatening, Hospitalization)
  Sender: FDA-Public Use
  Company Number: US-JNJFOC-20221004160

PATIENT
  Age: 51 Year
  Sex: Male
  Weight: 107.51 kg

DRUGS (2)
  1. REMICADE [Suspect]
     Active Substance: INFLIXIMAB
     Indication: Crohn^s disease
     Route: 041
     Dates: start: 20120126, end: 20210106
  2. REMICADE [Suspect]
     Active Substance: INFLIXIMAB
     Route: 041
     Dates: start: 20220803, end: 20220928

REACTIONS (5)
  - Cardiac disorder [Recovering/Resolving]
  - Acute kidney injury [Recovering/Resolving]
  - Cerebrovascular accident [Recovering/Resolving]
  - Pulmonary oedema [Recovering/Resolving]
  - Infusion related hypersensitivity reaction [Recovering/Resolving]

NARRATIVE: CASE EVENT DATE: 20220928
